FAERS Safety Report 8307497 (Version 3)
Quarter: 2015Q2

REPORT INFORMATION
  Report Type: Spontaneous
  Country: US (occurrence: US)
  Receive Date: 20111222
  Receipt Date: 20150415
  Transmission Date: 20150821
  Serious: Yes (Other)
  Sender: FDA-Public Use
  Company Number: US-ROCHE-1024007

PATIENT
  Age: 33 Year
  Sex: Female

DRUGS (2)
  1. ACCUTANE [Suspect]
     Active Substance: ISOTRETINOIN
     Indication: ACNE
     Route: 065
     Dates: start: 1984
  2. ACCUTANE [Suspect]
     Active Substance: ISOTRETINOIN
     Route: 065
     Dates: start: 200011, end: 200104

REACTIONS (10)
  - Inflammatory bowel disease [Unknown]
  - Acne [Unknown]
  - Lip dry [Unknown]
  - Dry skin [Unknown]
  - Blood triglycerides increased [Unknown]
  - Colitis ulcerative [Unknown]
  - Epistaxis [Unknown]
  - Blood cholesterol increased [Unknown]
  - Injury [Unknown]
  - Oropharyngeal pain [Unknown]

NARRATIVE: CASE EVENT DATE: 20001212
